FAERS Safety Report 7608598-7 (Version None)
Quarter: 2011Q3

REPORT INFORMATION
  Report Type: 
  Country: None (occurrence: None)
  Receive Date: 20110714
  Receipt Date: 20110701
  Transmission Date: 20111222
  Serious: Yes (Other)
  Sender: FDA-Public Use
  Company Number: PHHY2010JP83772

PATIENT
  Sex: Male
  Weight: 71 kg

DRUGS (11)
  1. ATELEC [Suspect]
     Indication: HYPERTENSION
     Dosage: UNK
     Route: 048
     Dates: start: 20071001
  2. CALCIUM CARBONATE [Concomitant]
     Indication: HYPERPHOSPHATAEMIA
     Dosage: 1500 MG, UNK
     Route: 048
     Dates: start: 20071214
  3. OMEPRAZOLE [Concomitant]
     Indication: GASTRIC ULCER
     Dosage: 20 MG, UNK
     Route: 048
     Dates: start: 20091014
  4. RASILEZ [Suspect]
     Dosage: 150 MG DAILY
     Route: 048
     Dates: start: 20101115
  5. MICARDIS [Concomitant]
     Indication: HYPERTENSION
     Dosage: 40 MG, UNK
     Route: 048
     Dates: start: 20060522
  6. ALDACTONE [Concomitant]
     Indication: HYPERTENSION
     Dosage: 25 MG, UNK
     Route: 048
     Dates: start: 20100104
  7. DEPAS [Concomitant]
     Dosage: 1.5 MG, UNK
     Route: 048
     Dates: start: 20080222
  8. RASILEZ [Suspect]
     Indication: HYPERTENSION
     Dosage: 150 MG DAILY
     Route: 048
     Dates: start: 20101101, end: 20101104
  9. LASIX [Concomitant]
     Indication: OEDEMA
     Dosage: 80 MG, UNK
     Dates: start: 20060522
  10. TRICHLORMETHIAZIDE [Concomitant]
     Indication: OEDEMA
     Dosage: 2 MG, UNK
     Route: 048
     Dates: start: 20080125
  11. AMOBAN [Concomitant]
     Indication: INSOMNIA
     Dosage: 7.5 MG, UNK
     Route: 048
     Dates: start: 20071001

REACTIONS (4)
  - BLOOD CREATININE INCREASED [None]
  - ASCITES [None]
  - INFECTIOUS PERITONITIS [None]
  - PERITONEAL CLOUDY EFFLUENT [None]
